FAERS Safety Report 9336401 (Version 1)
Quarter: 2013Q2

REPORT INFORMATION
  Report Type: Spontaneous
  Country: CH (occurrence: CH)
  Receive Date: 20130607
  Receipt Date: 20130607
  Transmission Date: 20140414
  Serious: Yes (Other)
  Sender: FDA-Public Use
  Company Number: CH-JNJFOC-20130602429

PATIENT
  Age: 47 Year
  Sex: Female

DRUGS (14)
  1. DOXORUBICIN [Suspect]
     Indication: DIFFUSE LARGE B-CELL LYMPHOMA
     Dosage: DAY 1
     Route: 042
  2. RITUXIMAB [Suspect]
     Indication: DIFFUSE LARGE B-CELL LYMPHOMA
     Dosage: DAY 1
     Route: 042
  3. CYCLOPHOSPHAMIDE [Suspect]
     Indication: DIFFUSE LARGE B-CELL LYMPHOMA
     Dosage: DAY 1
     Route: 042
  4. VINCRISTINE [Suspect]
     Indication: DIFFUSE LARGE B-CELL LYMPHOMA
     Dosage: DAY 1
     Route: 042
  5. PREDNISOLONE [Suspect]
     Indication: DIFFUSE LARGE B-CELL LYMPHOMA
     Dosage: DAYS 1-5
     Route: 048
  6. PEGFILGRASTIM [Concomitant]
     Indication: PALLIATIVE CARE
     Dosage: DAY 1
     Route: 058
  7. CYTARABINE [Concomitant]
     Indication: PALLIATIVE CARE
     Dosage: DAY 1
     Route: 037
  8. CLEMASTINE [Concomitant]
     Indication: PALLIATIVE CARE
     Dosage: DAY 1
     Route: 042
  9. PARACETAMOL [Concomitant]
     Indication: INFLUENZA LIKE ILLNESS
     Dosage: DAY 1
     Route: 048
  10. ALLOPURINOL [Concomitant]
     Indication: URAEMIC NEUROPATHY
     Dosage: DAYS 1-10
     Route: 048
  11. METHYLPREDNISOLONE [Concomitant]
     Indication: PROPHYLAXIS OF NAUSEA AND VOMITING
     Route: 042
  12. TROPISETRON [Concomitant]
     Indication: PROPHYLAXIS OF NAUSEA AND VOMITING
     Dosage: DAY 1
     Route: 042
  13. METOCLOPRAMIDE [Concomitant]
     Indication: PROPHYLAXIS OF NAUSEA AND VOMITING
     Route: 048
  14. DEXAMETHASONE [Concomitant]
     Indication: PROPHYLAXIS
     Dosage: DAYS 1-5
     Route: 048

REACTIONS (4)
  - Peripheral sensory neuropathy [Recovered/Resolved]
  - Muscle spasms [Unknown]
  - Cough [Recovered/Resolved]
  - Headache [Recovered/Resolved]
